FAERS Safety Report 7622200-X (Version None)
Quarter: 2011Q3

REPORT INFORMATION
  Report Type: 
  Country: None (occurrence: None)
  Receive Date: 20110720
  Receipt Date: 20110624
  Transmission Date: 20111222
  Serious: Yes (Other)
  Sender: FDA-Public Use
  Company Number: US-BAYER-2011-056659

PATIENT
  Age: 36 Year
  Sex: Female
  Weight: 66 kg

DRUGS (7)
  1. VITAMIN B [Concomitant]
  2. NAPROXEN (ALEVE) [Concomitant]
     Dosage: UNK UNK, PRN
  3. LEXAPRO [Concomitant]
     Indication: DEPRESSION
     Dosage: UNK
  4. CALCIUM [CALCIUM] [Concomitant]
  5. SYNTHROID [Concomitant]
     Indication: HYPOTHYROIDISM
     Dosage: UNK
     Dates: start: 20020801
  6. YAZ [Suspect]
     Indication: PREMENSTRUAL SYNDROME
     Dosage: UNK
     Dates: start: 20070701, end: 20090701
  7. VITAMIN TAB [Concomitant]
     Dosage: UNK
     Dates: start: 20020101

REACTIONS (3)
  - ABDOMINAL PAIN UPPER [None]
  - CHOLECYSTECTOMY [None]
  - CHOLECYSTITIS CHRONIC [None]
